FAERS Safety Report 15478663 (Version 10)
Quarter: 2018Q4

REPORT INFORMATION
  Report Type: Spontaneous
  Country: FR (occurrence: FR)
  Receive Date: 20181009
  Receipt Date: 20181120
  Transmission Date: 20190205
  Serious: Yes (Hospitalization, Other)
  Sender: FDA-Public Use
  Company Number: FR-PFIZER INC-2018405754

PATIENT
  Age: 70 Year
  Sex: Male

DRUGS (12)
  1. ELIQUIS [Suspect]
     Active Substance: APIXABAN
     Indication: CEREBROVASCULAR ACCIDENT PROPHYLAXIS
     Dosage: 10 MG, 1X/DAY
     Route: 048
     Dates: start: 20180911
  2. CANDESARTAN CILEXETIL. [Suspect]
     Active Substance: CANDESARTAN CILEXETIL
     Indication: HYPERTENSION
     Dosage: 4 MG, DAILY
     Route: 048
     Dates: start: 20180911
  3. METFORMIN HCL [Suspect]
     Active Substance: METFORMIN HYDROCHLORIDE
     Indication: TYPE 2 DIABETES MELLITUS
     Dosage: 3 G, DAILY
     Route: 048
  4. RANITIDINE. [Suspect]
     Active Substance: RANITIDINE
     Dosage: 150 MG, DAILY
     Route: 048
     Dates: start: 20180911
  5. LERCAN [Suspect]
     Active Substance: LERCANIDIPINE
     Indication: HYPERTENSION
     Dosage: 10 MG, DAILY
     Route: 048
     Dates: start: 20180911
  6. NOVOMIX [Suspect]
     Active Substance: INSULIN ASPART
     Indication: TYPE 2 DIABETES MELLITUS
     Dosage: UNK
     Route: 058
  7. XATRAL /00975302/ [Suspect]
     Active Substance: ALFUZOSIN HYDROCHLORIDE
     Indication: PROSTATOMEGALY
     Dosage: 10 MG, DAILY
     Route: 048
     Dates: start: 20180911
  8. ATENOLOL. [Suspect]
     Active Substance: ATENOLOL
     Indication: HYPERTENSION
     Dosage: 50 MG, DAILY
     Route: 048
  9. ATORVASTATIN CALCIUM. [Suspect]
     Active Substance: ATORVASTATIN CALCIUM
     Indication: HYPERCHOLESTEROLAEMIA
     Dosage: 10 MG, DAILY
     Route: 048
  10. GLYCEROL/PARAFFIN, LIQUID/WHITE SOFT PARAFFIN [Concomitant]
     Indication: ECZEMA
     Dosage: UNK UNK, DAILY
     Route: 003
  11. ELIQUIS [Suspect]
     Active Substance: APIXABAN
     Indication: ATRIAL FLUTTER
     Dosage: 2 DF, 1X/DAY
     Dates: start: 20180911
  12. DEXERYL /01579901/ [Concomitant]
     Active Substance: GLYCERIN\MINERAL OIL\PETROLATUM
     Indication: ECZEMA
     Dosage: 1 DF, QD
     Route: 003

REACTIONS (2)
  - Off label use [Unknown]
  - Acute kidney injury [Not Recovered/Not Resolved]

NARRATIVE: CASE EVENT DATE: 20180913
